FAERS Safety Report 8911674 (Version 1)
Quarter: 2012Q4

REPORT INFORMATION
  Report Type: 
  Country: US (occurrence: US)
  Receive Date: 20121116
  Receipt Date: 20121116
  Transmission Date: 20130627
  Serious: Yes (Hospitalization)
  Sender: FDA-Public Use
  Company Number: US-BAYER-2012-117758

PATIENT
  Age: 26 Year
  Sex: Female
  Weight: 52 kg

DRUGS (6)
  1. OCELLA [Suspect]
  2. DIFLUCAN [Concomitant]
  3. NAPROSYN [Concomitant]
     Indication: NECK PAIN
  4. NAPROSYN [Concomitant]
     Indication: HEADACHE
  5. ZANTAC [Concomitant]
     Indication: HEARTBURN
     Dosage: 150 mg, PRN
  6. SPIRONOLACTONE [Concomitant]
     Dosage: 25 mg, QID

REACTIONS (4)
  - Pulmonary embolism [None]
  - Deep vein thrombosis [None]
  - Vena cava thrombosis [None]
  - Pelvic venous thrombosis [None]
